FAERS Safety Report 25045914 (Version 1)
Quarter: 2025Q1

REPORT INFORMATION
  Report Type: Spontaneous
  Country: US (occurrence: US)
  Receive Date: 20250306
  Receipt Date: 20250306
  Transmission Date: 20250409
  Serious: No
  Sender: JOHNSON AND JOHNSON
  Company Number: US-JNJFOC-20250250877

PATIENT
  Sex: Female

DRUGS (33)
  1. SIMPONI [Suspect]
     Active Substance: GOLIMUMAB
     Indication: Product used for unknown indication
     Route: 058
  2. TYLENOL [Concomitant]
     Active Substance: ACETAMINOPHEN
  3. ATROPINE [Concomitant]
     Active Substance: ATROPINE
  4. BACLOFEN [Concomitant]
     Active Substance: BACLOFEN
  5. CHOLECALCIFEROL [Concomitant]
     Active Substance: CHOLECALCIFEROL
  6. CYANOCOBALAMIN [Concomitant]
     Active Substance: CYANOCOBALAMIN
  7. CEQUA [Concomitant]
     Active Substance: CYCLOSPORINE
  8. PROLIA [Concomitant]
     Active Substance: DENOSUMAB
  9. BENADRYL [AMMONIUM CHLORIDE;DIPHENHYDRAMINE HYDROCHLORIDE;MENTHOL;SODI [Concomitant]
  10. CYMBALTA [Concomitant]
     Active Substance: DULOXETINE HYDROCHLORIDE
  11. LASIX [Concomitant]
     Active Substance: FUROSEMIDE
  12. NEURONTIN [Concomitant]
     Active Substance: GABAPENTIN
  13. SYNTHROID [Concomitant]
     Active Substance: LEVOTHYROXINE SODIUM
  14. LEVOTHYROXINE [Concomitant]
     Active Substance: LEVOTHYROXINE
  15. PRINIVIL [Concomitant]
     Active Substance: LISINOPRIL
  16. ZESTRIL [Concomitant]
     Active Substance: LISINOPRIL
  17. ATIVAN [Concomitant]
     Active Substance: LORAZEPAM
  18. MAGNESIUM OXIDE [Concomitant]
     Active Substance: MAGNESIUM OXIDE
  19. GLUCOPHAGE [Concomitant]
     Active Substance: METFORMIN HYDROCHLORIDE
  20. METHENAMINE;SODIUM PHOSPHATE [Concomitant]
  21. TOPROL XL [Concomitant]
     Active Substance: METOPROLOL SUCCINATE
  22. MYRBETRIQ [Concomitant]
     Active Substance: MIRABEGRON
  23. NITROSTAT [Concomitant]
     Active Substance: NITROGLYCERIN
  24. OMEPRAZOLE [Concomitant]
     Active Substance: OMEPRAZOLE
  25. ELMIRON [Concomitant]
     Active Substance: PENTOSAN POLYSULFATE SODIUM
  26. SALAGEN [Concomitant]
     Active Substance: PILOCARPINE HYDROCHLORIDE
  27. POTASSIUM CHLORIDE [Concomitant]
     Active Substance: POTASSIUM CHLORIDE
  28. DEXAMETHASONE [Concomitant]
     Active Substance: DEXAMETHASONE
  29. SODIUM CHLORIDE [Concomitant]
     Active Substance: SODIUM CHLORIDE
  30. CANRENOATE POTASSIUM [Concomitant]
     Active Substance: CANRENOATE POTASSIUM
  31. CARAFATE [Concomitant]
     Active Substance: SUCRALFATE
  32. KENALOG [Concomitant]
     Active Substance: TRIAMCINOLONE ACETONIDE
  33. ZINC [Concomitant]
     Active Substance: ZINC

REACTIONS (2)
  - Nausea [Unknown]
  - Vomiting [Unknown]
